FAERS Safety Report 24190956 (Version 1)
Quarter: 2024Q3

REPORT INFORMATION
  Report Type: Spontaneous
  Country: US (occurrence: US)
  Receive Date: 20240808
  Receipt Date: 20240808
  Transmission Date: 20241017
  Serious: Yes (Hospitalization, Other)
  Sender: TAKEDA
  Company Number: US-TAKEDA-2024TUS077925

PATIENT
  Age: 10 Year
  Sex: Male
  Weight: 40 kg

DRUGS (1)
  1. FEIBA NF [Suspect]
     Active Substance: ANTI-INHIBITOR COAGULANT COMPLEX
     Indication: Factor IX deficiency
     Dosage: 3784 INTERNATIONAL UNIT, QOD
     Route: 042

REACTIONS (4)
  - Gingival bleeding [Unknown]
  - Haemarthrosis [Unknown]
  - Product dose omission issue [Unknown]
  - Product use issue [Unknown]
